FAERS Safety Report 9390695 (Version 1)
Quarter: 2013Q3

REPORT INFORMATION
  Report Type: Spontaneous
  Country: US (occurrence: None)
  Receive Date: 20130705
  Receipt Date: 20130705
  Transmission Date: 20140515
  Serious: Yes (Death)
  Sender: FDA-Public Use
  Company Number: None

PATIENT
  Age: 70 Year
  Sex: Female
  Weight: 59.5 kg

DRUGS (15)
  1. RAYOS [Suspect]
     Indication: RHEUMATOID ARTHRITIS
     Dates: start: 20130520, end: 20130612
  2. METHOTREXATE [Concomitant]
  3. FOLIC ACID [Concomitant]
  4. ARMOUR THYROID [Concomitant]
  5. IBUPROFEN [Concomitant]
  6. L-ARGININE [Concomitant]
  7. L-LYSINE [Concomitant]
  8. L-PROLINE [Concomitant]
  9. COQ10 [Concomitant]
  10. FISH OIL [Concomitant]
  11. VITAMIN D [Concomitant]
  12. VITAMIN C [Concomitant]
  13. GLUCOSAMINE/CHONDROITIN [Concomitant]
  14. HOIMOCYSTEINE FACTOR [Concomitant]
  15. RAWOLFIA [Concomitant]

REACTIONS (3)
  - Headache [None]
  - Sudden death [None]
  - Cerebral haemorrhage [None]
